FAERS Safety Report 7704889-X (Version None)
Quarter: 2011Q3

REPORT INFORMATION
  Report Type: 
  Country: None (occurrence: None)
  Receive Date: 20110823
  Receipt Date: 20110818
  Transmission Date: 20111222
  Serious: Yes (Other)
  Sender: FDA-Public Use
  Company Number: US-PFIZER INC-2011132588

PATIENT
  Sex: Female

DRUGS (8)
  1. WARFARIN [Concomitant]
     Indication: THROMBOSIS
     Dosage: UNK
     Dates: start: 20040101
  2. HYDROCODONE [Concomitant]
     Indication: BACK PAIN
  3. HYDROCODONE [Concomitant]
     Indication: PAIN IN EXTREMITY
  4. CHANTIX [Suspect]
     Indication: SMOKING CESSATION THERAPY
     Dosage: 0.5MG AND 1MG
     Dates: start: 20080101, end: 20080301
  5. HYDROCODONE [Concomitant]
     Indication: MUSCULOSKELETAL PAIN
     Dosage: UNK
     Dates: start: 20040101
  6. LORAZEPAM [Concomitant]
     Indication: DEPRESSION
     Dosage: UNK
     Dates: start: 20060101
  7. GABAPENTIN [Concomitant]
     Indication: RESTLESS LEGS SYNDROME
     Dosage: UNK
     Dates: start: 20060101
  8. TRAMADOL [Concomitant]
     Indication: PAIN
     Dosage: UNK
     Dates: start: 20040101

REACTIONS (7)
  - DEPRESSION [None]
  - SUICIDE ATTEMPT [None]
  - ANXIETY [None]
  - SUICIDAL IDEATION [None]
  - MENTAL DISORDER [None]
  - IRRITABILITY [None]
  - TREMOR [None]
